FAERS Safety Report 8115643-1 (Version None)
Quarter: 2012Q1

REPORT INFORMATION
  Report Type: 
  Country: None (occurrence: None)
  Receive Date: 20120124
  Receipt Date: 20111221
  Transmission Date: 20120608
  Serious: No
  Sender: FDA-Public Use
  Company Number: US-145277

PATIENT

DRUGS (1)
  1. WINRHO SDF LIQUID [Suspect]
     Dosage: (INTRAVENOUS (NOT OTHERWISE SPECIFIED))
     Route: 042
     Dates: start: 20111221, end: 20111221

REACTIONS (1)
  - NO ADVERSE EVENT [None]
